FAERS Safety Report 7207860-X (Version None)
Quarter: 2010Q4

REPORT INFORMATION
  Report Type: 
  Country: None (occurrence: None)
  Receive Date: 20101221
  Receipt Date: 20101217
  Transmission Date: 20110411
  Serious: Yes (Death, Hospitalization)
  Sender: FDA-Public Use
  Company Number: 2010S1001032

PATIENT
  Age: 88 Year
  Sex: Female

DRUGS (1)
  1. LIVALO [Suspect]
     Indication: DYSLIPIDAEMIA
     Dosage: 2 MG;BID;PO
     Route: 048
     Dates: start: 20101014

REACTIONS (4)
  - ELECTROCARDIOGRAM ST SEGMENT ELEVATION [None]
  - MENTAL IMPAIRMENT [None]
  - PHYSICAL EXAMINATION ABNORMAL [None]
  - SOMNOLENCE [None]
